FAERS Safety Report 14270156 (Version 2)
Quarter: 2018Q3

REPORT INFORMATION
  Report Type: Spontaneous
  Country: JP (occurrence: JP)
  Receive Date: 20171211
  Receipt Date: 20180803
  Transmission Date: 20181010
  Serious: Yes (Hospitalization, Other)
  Sender: FDA-Public Use
  Company Number: JP-OTSUKA-BJ20107071

PATIENT
  Age: 34 Year
  Sex: Female
  Weight: 70 kg

DRUGS (8)
  1. DEPAS [Concomitant]
     Active Substance: ETIZOLAM
     Indication: SCHIZOPHRENIA
     Dosage: 1 MG, QD
     Route: 048
  2. SENIRAN [Concomitant]
     Active Substance: BROMAZEPAM
     Indication: SCHIZOPHRENIA
     Dosage: 5 MG, QD
     Route: 048
  3. SEFTAC [Concomitant]
     Active Substance: TEPRENONE
     Indication: PRODUCT USED FOR UNKNOWN INDICATION
     Dosage: 100 MG, QD
     Route: 048
  4. GLORIAMIN [Concomitant]
     Indication: PRODUCT USED FOR UNKNOWN INDICATION
     Dosage: 1.34 G, QD
     Route: 048
  5. EURODIN [Concomitant]
     Indication: SCHIZOPHRENIA
     Dosage: 4 MG, QD
     Route: 048
  6. ABILIFY [Suspect]
     Active Substance: ARIPIPRAZOLE
     Indication: SCHIZOPHRENIA
     Dosage: 12 MG, QD
     Route: 048
     Dates: start: 2008, end: 200809
  7. U PAN [Concomitant]
     Active Substance: LORAZEPAM
     Indication: SCHIZOPHRENIA
     Dosage: 1 MG, QD
     Route: 048
  8. CHLORPROMAZINE. [Concomitant]
     Active Substance: CHLORPROMAZINE
     Indication: PRODUCT USED FOR UNKNOWN INDICATION
     Dosage: UNK
     Route: 065

REACTIONS (3)
  - Amniotic cavity infection [Unknown]
  - Abortion infected [Recovered/Resolved]
  - Maternal exposure during pregnancy [Unknown]

NARRATIVE: CASE EVENT DATE: 20080925
